FAERS Safety Report 7023640-2 (Version None)
Quarter: 2010Q3

REPORT INFORMATION
  Report Type: 
  Country: None (occurrence: None)
  Receive Date: 20100929
  Receipt Date: 20100929
  Transmission Date: 20110219
  Serious: No
  Sender: FDA-Public Use
  Company Number: None

PATIENT
  Age: 68 Year
  Sex: Female

DRUGS (1)
  1. GABAPENTIN [Suspect]
     Dosage: TAKE 1 TABLET FOUR TIMES A DAY
     Dates: start: 20100624

REACTIONS (2)
  - DYSPHAGIA [None]
  - PRODUCT QUALITY ISSUE [None]
